FAERS Safety Report 8369192-6 (Version None)
Quarter: 2012Q2

REPORT INFORMATION
  Report Type: 
  Country: None (occurrence: None)
  Receive Date: 20120518
  Receipt Date: 20120514
  Transmission Date: 20120825
  Serious: Yes (Hospitalization)
  Sender: FDA-Public Use
  Company Number: US-BAYER-2012-018561

PATIENT
  Age: 25 Year
  Sex: Female
  Weight: 115.65 kg

DRUGS (2)
  1. LOESTRIN 24 FE [Concomitant]
  2. YAZ [Suspect]
     Dosage: UNK
     Dates: start: 20070701, end: 20100201

REACTIONS (5)
  - ABDOMINAL PAIN [None]
  - GALLBLADDER DISORDER [None]
  - DYSPEPSIA [None]
  - BACK PAIN [None]
  - CHOLECYSTITIS ACUTE [None]
